FAERS Safety Report 7557108-1 (Version None)
Quarter: 2011Q2

REPORT INFORMATION
  Report Type: 
  Country: None (occurrence: None)
  Receive Date: 20110620
  Receipt Date: 20110616
  Transmission Date: 20111010
  Serious: Yes (Life-Threatening, Other)
  Sender: FDA-Public Use
  Company Number: JP-EISAI INC-E2020-09143-SPO-JP

PATIENT
  Age: 82 Year
  Sex: Female
  Weight: 40 kg

DRUGS (2)
  1. ARICEPT [Suspect]
     Indication: DEMENTIA ALZHEIMER'S TYPE
     Route: 048
     Dates: start: 20080101, end: 20110512
  2. YOKU-KAN-SAN [Concomitant]
     Route: 048
     Dates: end: 20110511

REACTIONS (2)
  - ATRIOVENTRICULAR BLOCK COMPLETE [None]
  - TORSADE DE POINTES [None]
